FAERS Safety Report 8098117-6 (Version None)
Quarter: 2012Q1

REPORT INFORMATION
  Report Type: 
  Country: None (occurrence: None)
  Receive Date: 20120128
  Receipt Date: 20110816
  Transmission Date: 20120608
  Serious: No
  Sender: FDA-Public Use
  Company Number: US-ABBOTT-11P-163-0847477-00

PATIENT
  Age: 54 Year
  Sex: Female

DRUGS (3)
  1. HUMIRA [Suspect]
     Indication: CROHN'S DISEASE
     Dosage: TEMPORARILY DISRUPTED
     Dates: start: 20101101, end: 20110401
  2. HUMIRA [Suspect]
     Dates: start: 20110805
  3. IMURAN [Concomitant]
     Indication: CROHN'S DISEASE

REACTIONS (1)
  - PNEUMONIA [None]
